FAERS Safety Report 14360794 (Version 3)
Quarter: 2018Q1

REPORT INFORMATION
  Report Type: Spontaneous
  Country: JP (occurrence: JP)
  Receive Date: 20180107
  Receipt Date: 20180122
  Transmission Date: 20180509
  Serious: Yes (Hospitalization, Other)
  Sender: FDA-Public Use
  Company Number: JP-TEVA-2018-JP-844330

PATIENT
  Age: 73 Year
  Sex: Female

DRUGS (1)
  1. RISEDRONATE SODIUM - BP (RISEDRONATE SODIUM) UNKNOWN [Suspect]
     Active Substance: RISEDRONATE SODIUM
     Indication: OSTEOPOROSIS
     Route: 048

REACTIONS (10)
  - Oesophageal stenosis [Recovered/Resolved]
  - Mucosal hypertrophy [Recovered/Resolved]
  - Oesophageal ulcer [Recovered/Resolved]
  - Inflammation [Recovered/Resolved]
  - Dysphagia [Recovered/Resolved]
  - Oedema mucosal [Recovered/Resolved]
  - Pemphigus [Recovered/Resolved]
  - Oesophageal haemorrhage [Recovered/Resolved]
  - Mouth ulceration [Recovered/Resolved]
  - Weight decreased [Recovered/Resolved]
